FAERS Safety Report 8848376 (Version 3)
Quarter: 2016Q1

REPORT INFORMATION
  Report Type: Report from Study
  Country: JP (occurrence: JP)
  Receive Date: 20121018
  Receipt Date: 20160309
  Transmission Date: 20160526
  Serious: Yes (Hospitalization, Other)
  Sender: FDA-Public Use
  Company Number: PHHY2009JP09658

PATIENT
  Age: 48 Year
  Sex: Male
  Weight: 63 kg

DRUGS (14)
  1. ICL670A [Suspect]
     Active Substance: DEFERASIROX
     Dosage: 625 MG, QD
     Route: 048
     Dates: start: 20080902, end: 20081010
  2. ROHYPNOL [Concomitant]
     Active Substance: FLUNITRAZEPAM
     Indication: PRODUCT USED FOR UNKNOWN INDICATION
     Dosage: 0.5 MG, UNK
     Route: 048
     Dates: start: 20080830, end: 20090228
  3. FUROSEMIDE. [Concomitant]
     Active Substance: FUROSEMIDE
     Indication: PRODUCT USED FOR UNKNOWN INDICATION
     Dosage: 40 MG, UNK
     Route: 048
     Dates: start: 20080830, end: 20090228
  4. URSO [Concomitant]
     Active Substance: URSODIOL
     Indication: PRODUCT USED FOR UNKNOWN INDICATION
     Dosage: 300 MG, UNK
     Route: 048
     Dates: start: 20080830, end: 20090228
  5. DESFERAL [Concomitant]
     Active Substance: DEFEROXAMINE MESYLATE
     Indication: PRODUCT USED FOR UNKNOWN INDICATION
     Dosage: 500 MG, QD
     Route: 065
     Dates: start: 20081010, end: 20081022
  6. TETRAMIDE [Concomitant]
     Active Substance: MIANSERIN
     Indication: PRODUCT USED FOR UNKNOWN INDICATION
     Dosage: 30 MG, UNK
     Route: 048
     Dates: start: 20080830, end: 20090228
  7. PARIET [Concomitant]
     Active Substance: RABEPRAZOLE SODIUM
     Indication: PRODUCT USED FOR UNKNOWN INDICATION
     Dosage: 10 MG, UNK
     Route: 048
     Dates: start: 20080830, end: 20090228
  8. ICL670A [Suspect]
     Active Substance: DEFERASIROX
     Indication: IRON OVERLOAD
     Dosage: 1250 MG, QD
     Route: 048
     Dates: start: 20080830, end: 20080901
  9. VANCOMYCIN HYDROCHLORIDE FOR INTRAVENOUS INFUSION [Suspect]
     Active Substance: VANCOMYCIN HYDROCHLORIDE
     Indication: PRODUCT USED FOR UNKNOWN INDICATION
     Dosage: 1 G DAY
     Route: 042
     Dates: start: 20081219, end: 20081227
  10. TAMIFLU [Suspect]
     Active Substance: OSELTAMIVIR PHOSPHATE
     Indication: PRODUCT USED FOR UNKNOWN INDICATION
     Dosage: 150 MG/ DAY
     Route: 048
     Dates: start: 20090108, end: 20090112
  11. DIFLUCAN [Concomitant]
     Active Substance: FLUCONAZOLE
     Indication: PRODUCT USED FOR UNKNOWN INDICATION
     Dosage: 100 MG, UNK
     Route: 048
     Dates: start: 20080830, end: 20090228
  12. ALDACTONE-A [Concomitant]
     Active Substance: SPIRONOLACTONE
     Indication: PRODUCT USED FOR UNKNOWN INDICATION
     Dosage: 25 MG, UNK
     Route: 048
     Dates: start: 20080830, end: 20090228
  13. ICL670A [Suspect]
     Active Substance: DEFERASIROX
     Dosage: 625 MG/ DAY
     Route: 048
     Dates: start: 20080902, end: 20081010
  14. VANCOMYCIN HYDROCHLORIDE FOR INTRAVENOUS INFUSION [Suspect]
     Active Substance: VANCOMYCIN HYDROCHLORIDE
     Dosage: 0.75 G/ DAY
     Route: 042
     Dates: start: 20081228, end: 200901

REACTIONS (2)
  - Vomiting [Not Recovered/Not Resolved]
  - Renal impairment [Not Recovered/Not Resolved]

NARRATIVE: CASE EVENT DATE: 20090111
